FAERS Safety Report 24746277 (Version 1)
Quarter: 2024Q4

REPORT INFORMATION
  Report Type: Spontaneous
  Country: RU (occurrence: RU)
  Receive Date: 20241218
  Receipt Date: 20241218
  Transmission Date: 20250114
  Serious: Yes (Other)
  Sender: NOVARTIS
  Company Number: RU-002147023-NVSC2024RU237030

PATIENT
  Age: 84 Year
  Sex: Female

DRUGS (3)
  1. BROLUCIZUMAB [Suspect]
     Active Substance: BROLUCIZUMAB
     Indication: Age-related macular degeneration
     Dosage: UNK
     Route: 031
     Dates: start: 202207
  2. BROLUCIZUMAB [Suspect]
     Active Substance: BROLUCIZUMAB
     Indication: Diabetic retinal oedema
  3. DEXAMETHASONE [Concomitant]
     Active Substance: DEXAMETHASONE
     Indication: Product used for unknown indication
     Dosage: UNK
     Route: 065

REACTIONS (13)
  - Eye inflammation [Recovered/Resolved]
  - Vitritis [Recovered/Resolved]
  - Anterior chamber cell [Recovered/Resolved]
  - Papilloedema [Recovered/Resolved]
  - COVID-19 [Unknown]
  - Retinal artery occlusion [Recovered/Resolved]
  - Retinal vasculitis [Recovered/Resolved]
  - Vision blurred [Recovered/Resolved]
  - Vitreous floaters [Recovered/Resolved]
  - Pain [Recovered/Resolved]
  - Visual impairment [Recovered/Resolved]
  - Herpes zoster [Unknown]
  - Sinusitis [Unknown]

NARRATIVE: CASE EVENT DATE: 20230101
